FAERS Safety Report 6541027-3 (Version None)
Quarter: 2010Q1

REPORT INFORMATION
  Report Type: 
  Country: None (occurrence: None)
  Receive Date: 20100118
  Receipt Date: 20100111
  Transmission Date: 20100710
  Serious: Yes (Death)
  Sender: FDA-Public Use
  Company Number: US-GILEAD-2010-0026387

PATIENT
  Sex: Male
  Weight: 121.67 kg

DRUGS (15)
  1. LETAIRIS [Suspect]
     Indication: PULMONARY ARTERIAL HYPERTENSION
     Route: 048
     Dates: start: 20090619
  2. SPIRONOLACTONE [Concomitant]
  3. LISINOPRIL [Concomitant]
  4. SIMVASTATIN [Concomitant]
  5. FUROSEMIDE [Concomitant]
  6. ASPIRIN [Concomitant]
  7. SILDENAFIL [Concomitant]
  8. OXYGEN [Concomitant]
  9. ALBUTEROL [Concomitant]
  10. ASMANEX TWISTHALER [Concomitant]
  11. FORADIL [Concomitant]
  12. ALLOPURINOL [Concomitant]
  13. CITALOPRAM [Concomitant]
  14. GLYBURIDE [Concomitant]
  15. FLUNISOLIDE [Concomitant]

REACTIONS (1)
  - DEATH [None]
